FAERS Safety Report 8622446-8 (Version None)
Quarter: 2012Q3

REPORT INFORMATION
  Report Type: 
  Country: None (occurrence: None)
  Receive Date: 20120827
  Receipt Date: 20120816
  Transmission Date: 20120928
  Serious: No
  Sender: FDA-Public Use
  Company Number: US-BIOGENIDEC-2012BI032741

PATIENT
  Age: 24 Year
  Sex: Female

DRUGS (2)
  1. AVONEX [Suspect]
     Indication: MULTIPLE SCLEROSIS
     Route: 030
     Dates: start: 20100928, end: 20110301
  2. AVONEX [Suspect]
     Route: 030
     Dates: start: 20120128

REACTIONS (4)
  - MULTIPLE SCLEROSIS RELAPSE [None]
  - BLEPHAROSPASM [None]
  - SCAR [None]
  - ALOPECIA [None]
